FAERS Safety Report 9344328 (Version 2)
Quarter: 2013Q3

REPORT INFORMATION
  Report Type: Spontaneous
  Country: US (occurrence: US)
  Receive Date: 20130612
  Receipt Date: 20130724
  Transmission Date: 20140515
  Serious: Yes (Death, Hospitalization, Other)
  Sender: FDA-Public Use
  Company Number: US-ASTELLAS-2013US006099

PATIENT
  Age: 29 Year
  Sex: Male

DRUGS (1)
  1. PROGRAF [Suspect]
     Indication: LIVER TRANSPLANT
     Dosage: 6 MG, UID/QD
     Route: 048
     Dates: start: 19950421, end: 20130521

REACTIONS (21)
  - Drug ineffective [Not Recovered/Not Resolved]
  - Treatment noncompliance [Fatal]
  - Toxicity to various agents [Not Recovered/Not Resolved]
  - Complications of transplanted liver [Fatal]
  - Hepatorenal syndrome [Not Recovered/Not Resolved]
  - Ventricular tachycardia [Recovered/Resolved]
  - Gingival bleeding [Unknown]
  - Ileus [Unknown]
  - Liver transplant rejection [Unknown]
  - Liver transplant rejection [Unknown]
  - Multi-organ failure [Fatal]
  - Renal failure acute [Not Recovered/Not Resolved]
  - Pancreatitis acute [Not Recovered/Not Resolved]
  - Coagulopathy [Unknown]
  - Hyperkalaemia [Not Recovered/Not Resolved]
  - Supraventricular tachycardia [Recovered/Resolved]
  - Mental status changes [Unknown]
  - Pruritus [Not Recovered/Not Resolved]
  - Haemoglobin decreased [Unknown]
  - Metabolic acidosis [Unknown]
  - Haemodialysis complication [Not Recovered/Not Resolved]
